FAERS Safety Report 16432143 (Version 1)
Quarter: 2019Q2

REPORT INFORMATION
  Report Type: Spontaneous
  Country: US (occurrence: US)
  Receive Date: 20190614
  Receipt Date: 20190614
  Transmission Date: 20190711
  Serious: No
  Sender: FDA-Public Use
  Company Number: US-JNJFOC-20170102692

PATIENT
  Sex: Male
  Weight: 81.65 kg

DRUGS (1)
  1. RISPERDAL CONSTA [Suspect]
     Active Substance: RISPERIDONE
     Indication: BIPOLAR DISORDER
     Dosage: INITIATED AT LEAST A YEAR AGO
     Route: 030

REACTIONS (1)
  - Sedation [Not Recovered/Not Resolved]

NARRATIVE: CASE EVENT DATE: 2016
